FAERS Safety Report 8158420-8 (Version None)
Quarter: 2012Q1

REPORT INFORMATION
  Report Type: 
  Country: None (occurrence: None)
  Receive Date: 20120223
  Receipt Date: 20120216
  Transmission Date: 20120608
  Serious: Yes (Hospitalization)
  Sender: FDA-Public Use
  Company Number: JP-SP-2012-01336

PATIENT
  Sex: Male
  Weight: 69 kg

DRUGS (8)
  1. BUFFERIN A81 [Concomitant]
     Dosage: ONCE A DAY
  2. ALPHAROL [Concomitant]
     Dosage: ONCE A DAY
  3. LANSOPRAZOLE [Concomitant]
     Dosage: ONCE A DAY
  4. PRECIPITATED CALCIUM CARBONATE [Concomitant]
     Dosage: THREE TIMES A DAY
  5. BIOPRESS [Concomitant]
     Dosage: ONCE A DAY
  6. NORVASC [Concomitant]
     Dosage: ONCE A DAY
  7. IMMUCYST [Suspect]
     Indication: BLADDER CANCER
     Route: 043
     Dates: start: 20111207, end: 20111228
  8. SEVELAMER HYDROCHLORIDE [Concomitant]
     Dosage: THREE TIMES A DAY

REACTIONS (7)
  - OCULAR HYPERAEMIA [None]
  - GAIT DISTURBANCE [None]
  - REITER'S SYNDROME [None]
  - PYREXIA [None]
  - ARTHRALGIA [None]
  - MALAISE [None]
  - DECREASED APPETITE [None]
